FAERS Safety Report 16328105 (Version 2)
Quarter: 2025Q3

REPORT INFORMATION
  Report Type: Report from Study
  Country: GB (occurrence: GB)
  Receive Date: 20190518
  Receipt Date: 20250722
  Transmission Date: 20251021
  Serious: Yes (Other)
  Sender: AUROBINDO
  Company Number: GB-AUROBINDO-AUR-APL-2019-027646

PATIENT

DRUGS (2)
  1. RIBAVIRIN [Suspect]
     Active Substance: RIBAVIRIN
     Indication: Lower respiratory tract infection viral
     Dosage: UNK UNK, ONCE A DAY(ONE, ONCE A DAY15-20MG/KG DIVIDED INTO 3 DAILY DOSES)
     Route: 048
  2. HUMAN IMMUNOGLOBULIN G [Suspect]
     Active Substance: HUMAN IMMUNOGLOBULIN G
     Indication: Lower respiratory tract infection viral
     Route: 042

REACTIONS (1)
  - Alanine aminotransferase increased [Recovered/Resolved]
